FAERS Safety Report 15844512 (Version 1)
Quarter: 2019Q1

REPORT INFORMATION
  Report Type: Report from Study
  Country: US (occurrence: US)
  Receive Date: 20190118
  Receipt Date: 20190118
  Transmission Date: 20190417
  Serious: Yes (Hospitalization)
  Sender: FDA-Public Use
  Company Number: US-TEVA-2019-US-996771

PATIENT
  Sex: Male

DRUGS (5)
  1. COPAXONE [Suspect]
     Active Substance: GLATIRAMER ACETATE
     Route: 058
     Dates: start: 20180829
  2. COPAXONE [Suspect]
     Active Substance: GLATIRAMER ACETATE
     Indication: MULTIPLE SCLEROSIS
     Route: 058
     Dates: start: 20120811
  3. ALBUTEROL. [Suspect]
     Active Substance: ALBUTEROL
     Indication: EMPHYSEMA
     Route: 065
  4. ALBUTEROL. [Suspect]
     Active Substance: ALBUTEROL
     Indication: CHRONIC OBSTRUCTIVE PULMONARY DISEASE
  5. COPAXONE [Suspect]
     Active Substance: GLATIRAMER ACETATE
     Route: 058
     Dates: start: 20140331, end: 20180702

REACTIONS (6)
  - Drug ineffective [Recovering/Resolving]
  - Walking aid user [Recovering/Resolving]
  - Logorrhoea [Recovering/Resolving]
  - Glaucoma [Recovering/Resolving]
  - Dyspnoea [Unknown]
  - Sputum discoloured [Recovering/Resolving]
